FAERS Safety Report 8923986 (Version 1)
Quarter: 2012Q4

REPORT INFORMATION
  Report Type: 
  Country: CA (occurrence: CA)
  Receive Date: 20121126
  Receipt Date: 20121126
  Transmission Date: 20130627
  Serious: Yes (Hospitalization)
  Sender: FDA-Public Use
  Company Number: CA-ELI_LILLY_AND_COMPANY-CA201211005466

PATIENT
  Age: 70 Year
  Sex: Female

DRUGS (15)
  1. FORTEO [Suspect]
     Indication: OSTEOPOROSIS
     Dosage: 20 ug, qd
     Route: 058
     Dates: start: 20120425
  2. NOVORAPID [Concomitant]
  3. LANTUS [Concomitant]
  4. LYRICA [Concomitant]
  5. RATIO-RAMIPRIL [Concomitant]
  6. LIPITOR [Concomitant]
  7. PRO-QUETIAPINE [Concomitant]
  8. PANTOPRAZOLE [Concomitant]
  9. APO-CYCLOBENZAPRINE [Concomitant]
  10. SENNOSIDES A+B [Concomitant]
  11. ACTONEL [Concomitant]
  12. COLACE [Concomitant]
  13. EPIVAL [Concomitant]
  14. VITAMIN E [Concomitant]
  15. VITAMIIN C [Concomitant]

REACTIONS (4)
  - Fall [Not Recovered/Not Resolved]
  - Fall [Not Recovered/Not Resolved]
  - Head injury [Not Recovered/Not Resolved]
  - Incorrect storage of drug [Recovered/Resolved]
